FAERS Safety Report 25861223 (Version 1)
Quarter: 2025Q3

REPORT INFORMATION
  Report Type: Spontaneous
  Country: EU (occurrence: EU)
  Receive Date: 20250929
  Receipt Date: 20250929
  Transmission Date: 20251020
  Serious: Yes (Death, Other)
  Sender: BIOMARIN
  Company Number: EU-BIOMARINAP-IE-2025-169053

PATIENT
  Age: 24 Year
  Sex: Male

DRUGS (5)
  1. NAGLAZYME [Suspect]
     Active Substance: GALSULFASE
     Indication: Mucopolysaccharidosis VI
     Dosage: 20 MILLIGRAM, QW
     Dates: start: 20150610
  2. ZOVIRAX [Concomitant]
     Active Substance: ACYCLOVIR
     Indication: Product used for unknown indication
  3. FUCIDIN [Concomitant]
     Active Substance: FUSIDATE SODIUM
     Indication: Product used for unknown indication
  4. CHOLECALCIFEROL [Concomitant]
     Active Substance: CHOLECALCIFEROL
     Indication: Product used for unknown indication
     Dosage: 800 INTERNATIONAL UNIT, QD
  5. Exputex [Concomitant]
     Indication: Product used for unknown indication

REACTIONS (3)
  - Death [Fatal]
  - Swollen tongue [Unknown]
  - Respiratory distress [Unknown]

NARRATIVE: CASE EVENT DATE: 20250924
